FAERS Safety Report 7412464-X (Version None)
Quarter: 2011Q2

REPORT INFORMATION
  Report Type: 
  Country: None (occurrence: None)
  Receive Date: 20110408
  Receipt Date: 20110408
  Transmission Date: 20111010
  Serious: Yes (Hospitalization, Other)
  Sender: FDA-Public Use
  Company Number: None

PATIENT
  Sex: Female
  Weight: 83.23 kg

DRUGS (9)
  1. ROSUVASTATIN [Concomitant]
  2. METHOCARBAMOL [Concomitant]
  3. FERROUS SULFATE TAB [Concomitant]
  4. METOPROLOL TARTRATE [Concomitant]
  5. CALCIUM CARBONATE +VITAMIN D [Concomitant]
  6. LEVOTHYROXINE SODIUM [Concomitant]
  7. LISINOPRIL [Suspect]
     Indication: HYPERTENSION
     Dosage: 1 TABLET DAILY PO
     Route: 048
     Dates: start: 20110101, end: 20110216
  8. ACETAMINOPHEN [Concomitant]
  9. SERTRALINE [Concomitant]

REACTIONS (2)
  - ANGIOEDEMA [None]
  - ANAPHYLACTIC SHOCK [None]
